FAERS Safety Report 16710277 (Version 1)
Quarter: 2019Q3

REPORT INFORMATION
  Report Type: Report from Study
  Country: None (occurrence: CO)
  Receive Date: 20190816
  Receipt Date: 20190816
  Transmission Date: 20191004
  Serious: Yes (Other)
  Sender: FDA-Public Use
  Company Number: CO-ABBVIE-19K-036-2891380-00

PATIENT
  Age: 61 Year
  Sex: Female
  Weight: 69 kg

DRUGS (4)
  1. HUMIRA [Suspect]
     Active Substance: ADALIMUMAB
     Indication: PSORIATIC ARTHROPATHY
     Dosage: HUMIRA AC
     Route: 058
     Dates: start: 20120731, end: 20190729
  2. LOSARTAN. [Concomitant]
     Active Substance: LOSARTAN
     Indication: PRODUCT USED FOR UNKNOWN INDICATION
     Route: 048
  3. METOPROLOL. [Concomitant]
     Active Substance: METOPROLOL
     Indication: PRODUCT USED FOR UNKNOWN INDICATION
     Route: 048
  4. NAPROXEN. [Concomitant]
     Active Substance: NAPROXEN
     Indication: PRODUCT USED FOR UNKNOWN INDICATION
     Route: 048

REACTIONS (6)
  - Ligament sprain [Unknown]
  - Fall [Recovering/Resolving]
  - Inflammation [Recovering/Resolving]
  - Limb injury [Recovering/Resolving]
  - Pain in extremity [Recovering/Resolving]
  - Ligament sprain [Recovering/Resolving]

NARRATIVE: CASE EVENT DATE: 201803
